FAERS Safety Report 9514931 (Version 1)
Quarter: 2013Q1

REPORT INFORMATION
  Report Type: Spontaneous
  Country: US (occurrence: None)
  Receive Date: 20130305
  Receipt Date: 20130305
  Transmission Date: 20140127
  Serious: Yes (Hospitalization)
  Sender: FDA-Public Use
  Company Number: 163-21880-12112716

PATIENT
  Age: 62 Year
  Sex: Male

DRUGS (6)
  1. REVLIMID [Suspect]
     Indication: PLASMA CELL MYELOMA
     Route: 048
     Dates: start: 20121105
  2. LORAZEPAM (LORAZEPAM) (UNKNOWN) [Concomitant]
  3. CITALOPRAM HYDROBROMIDE (CITALOPRAM HYDROBROMIDE) (UNKNOWN) [Concomitant]
  4. ALLOPURINOL (ALLOPURINOL) (UNKNOWN) [Concomitant]
  5. FIBERSOURCE (OTHER THERAPEUTIC PRODUCTS) (UNKNOWN) [Concomitant]
  6. TYLENOL (PARACETAMOL) (UNKNOWN) [Concomitant]

REACTIONS (1)
  - Infection [None]
